FAERS Safety Report 16845151 (Version 3)
Quarter: 2019Q3

REPORT INFORMATION
  Report Type: Report from Study
  Country: CA (occurrence: CA)
  Receive Date: 20190924
  Receipt Date: 20190926
  Transmission Date: 20191005
  Serious: Yes (Hospitalization)
  Sender: FDA-Public Use
  Company Number: CA-HLSUS-2019-CA-001063

PATIENT
  Age: 64 Year
  Sex: Male

DRUGS (13)
  1. CLOZARIL [Suspect]
     Active Substance: CLOZAPINE
     Route: 048
     Dates: start: 20091015, end: 20190905
  2. RINGER LACTATE SERUM [Concomitant]
     Dosage: 75 ML/HR
     Route: 042
  3. ACETAMINOPHEN. [Concomitant]
     Active Substance: ACETAMINOPHEN
     Dosage: 1000 MG THRICE DAILY
  4. CALCIUM CARBONATE. [Concomitant]
     Active Substance: CALCIUM CARBONATE
     Dosage: 1250 MG BID
  5. VITAMIN B12 [Concomitant]
     Active Substance: CYANOCOBALAMIN
     Dosage: 1000 MCG DAILY
  6. ENOXAPARIN [Concomitant]
     Active Substance: ENOXAPARIN
     Dosage: 40 MG
     Route: 058
  7. FERROUS FUMARATE [Concomitant]
     Active Substance: FERROUS FUMARATE
     Dosage: 300 MG AT BEDTIME
  8. DOMPERIDONE [Concomitant]
     Active Substance: DOMPERIDONE
     Dosage: 10 MG THRICE DAILY
  9. SENNA [Concomitant]
     Active Substance: SENNA LEAF\SENNOSIDES\SENNOSIDES A AND B
     Dosage: 8.6 MG DAILY
  10. ACETYLSALICYLIC ACID [Concomitant]
     Active Substance: ASPIRIN
     Dosage: 81 MG OD
  11. PANTAPRAZOLE [Concomitant]
     Active Substance: PANTOPRAZOLE SODIUM
     Dosage: 40 MG DAILY
  12. VITAMIN D [Concomitant]
     Active Substance: VITAMIN D NOS
     Dosage: 2000 UNIT DAILY
  13. LACTULOSE. [Concomitant]
     Active Substance: LACTULOSE
     Dosage: 10 GR DAILY

REACTIONS (13)
  - Blood alkaline phosphatase increased [Unknown]
  - Hallucination, auditory [Unknown]
  - Aspartate aminotransferase increased [Unknown]
  - Haemoglobin decreased [Unknown]
  - Platelet count decreased [Unknown]
  - Lymphocyte count increased [Unknown]
  - Pancytopenia [Unknown]
  - Haemophagocytic lymphohistiocytosis [Recovered/Resolved]
  - Neutrophil count decreased [Unknown]
  - Bone marrow failure [Unknown]
  - Malaise [Unknown]
  - Pyrexia [Unknown]
  - Catatonia [Unknown]

NARRATIVE: CASE EVENT DATE: 20190904
